FAERS Safety Report 15215620 (Version 7)
Quarter: 2019Q3

REPORT INFORMATION
  Report Type: Spontaneous
  Country: US (occurrence: US)
  Receive Date: 20180730
  Receipt Date: 20190710
  Transmission Date: 20191004
  Serious: No
  Sender: FDA-Public Use
  Company Number: US-PFIZER INC-2018303855

PATIENT
  Age: 55 Year
  Sex: Female
  Weight: 54 kg

DRUGS (4)
  1. SOMA [Concomitant]
     Active Substance: CARISOPRODOL
     Indication: MUSCLE SPASMS
     Dosage: 300 MG, 4X/DAY
     Route: 048
  2. LYRICA [Suspect]
     Active Substance: PREGABALIN
     Dosage: 50 MG, 3X/DAY
     Route: 048
  3. LYRICA [Suspect]
     Active Substance: PREGABALIN
     Indication: FIBROMYALGIA
     Dosage: 75 MG, 3X/DAY
  4. ATIVAN [Concomitant]
     Active Substance: LORAZEPAM
     Indication: ANXIETY
     Dosage: 1 MG, AS NEEDED (1MG TABLET BY MOUTH THREE TIMES A DAY AS NEEDED)
     Route: 048
     Dates: start: 2018

REACTIONS (9)
  - Intentional product misuse [Unknown]
  - Pain [Unknown]
  - Insomnia [Unknown]
  - Product use issue [Unknown]
  - Malaise [Unknown]
  - Diarrhoea [Unknown]
  - Muscle tightness [Unknown]
  - Withdrawal syndrome [Unknown]
  - Off label use [Unknown]
